FAERS Safety Report 11939943 (Version 1)
Quarter: 2016Q1

REPORT INFORMATION
  Report Type: Spontaneous
  Country: CA (occurrence: CA)
  Receive Date: 20160122
  Receipt Date: 20160122
  Transmission Date: 20160526
  Serious: Yes (Disabling)
  Sender: FDA-Public Use
  Company Number: CA-PFIZER INC-2015398314

PATIENT
  Age: 54 Year
  Sex: Male
  Weight: 91 kg

DRUGS (1)
  1. NORVASC [Suspect]
     Active Substance: AMLODIPINE BESYLATE
     Indication: HYPERTENSION
     Dosage: 5 MG, DAILY
     Route: 048
     Dates: start: 20120322, end: 20151112

REACTIONS (5)
  - Burning sensation [Recovering/Resolving]
  - Dry mouth [Recovering/Resolving]
  - Paraesthesia oral [Recovering/Resolving]
  - Hyperhidrosis [Recovering/Resolving]
  - Sleep disorder [Recovering/Resolving]

NARRATIVE: CASE EVENT DATE: 201508
